FAERS Safety Report 23268767 (Version 1)
Quarter: 2023Q4

REPORT INFORMATION
  Report Type: Spontaneous
  Country: JP (occurrence: JP)
  Receive Date: 20231206
  Receipt Date: 20231206
  Transmission Date: 20240110
  Serious: Yes (Hospitalization, Other)
  Sender: FDA-Public Use
  Company Number: JP-ADMA BIOLOGICS INC.-JP-2023ADM000225

PATIENT

DRUGS (2)
  1. HUMAN IMMUNOGLOBULIN G [Suspect]
     Active Substance: HUMAN IMMUNOGLOBULIN G
     Indication: Kawasaki^s disease
     Dosage: 2 GRAM PER KILOGRAM FOR 24 HOURS
     Route: 065
  2. ASPIRIN [Suspect]
     Active Substance: ASPIRIN
     Indication: Kawasaki^s disease
     Dosage: 30 GRAM PER KILOGRAM PER DAY
     Route: 042

REACTIONS (2)
  - Coronary artery aneurysm [Unknown]
  - Off label use [Unknown]
